FAERS Safety Report 23982498 (Version 1)
Quarter: 2024Q2

REPORT INFORMATION
  Report Type: Spontaneous
  Country: US (occurrence: US)
  Receive Date: 20240617
  Receipt Date: 20240617
  Transmission Date: 20240716
  Serious: No
  Sender: FDA-Public Use
  Company Number: US-Bion-013262

PATIENT

DRUGS (1)
  1. IBUPROFEN [Suspect]
     Active Substance: IBUPROFEN
     Indication: Headache
     Dosage: 3 SOFTGELS
     Dates: start: 20240519, end: 20240519

REACTIONS (6)
  - Nausea [Recovered/Resolved]
  - Product taste abnormal [Recovered/Resolved]
  - Diarrhoea [Recovered/Resolved]
  - Overdose [Unknown]
  - Abdominal discomfort [Recovered/Resolved]
  - Pyrexia [Recovered/Resolved]

NARRATIVE: CASE EVENT DATE: 20240519
